FAERS Safety Report 23539140 (Version 2)
Quarter: 2024Q1

REPORT INFORMATION
  Report Type: Spontaneous
  Country: US (occurrence: US)
  Receive Date: 20240219
  Receipt Date: 20240320
  Transmission Date: 20240410
  Serious: Yes (Hospitalization)
  Sender: FDA-Public Use
  Company Number: US-JNJFOC-20240216220

PATIENT
  Age: 33 Year
  Sex: Female

DRUGS (7)
  1. SIMPONI [Suspect]
     Active Substance: GOLIMUMAB
     Indication: Inflammatory bowel disease
     Route: 058
     Dates: start: 201312, end: 202303
  2. SIMPONI [Suspect]
     Active Substance: GOLIMUMAB
  3. BENADRYL [Concomitant]
     Active Substance: DIPHENHYDRAMINE HYDROCHLORIDE
     Indication: Sleep disorder
     Dates: start: 2011
  4. VALERIAN SLEEP [Concomitant]
     Indication: Sleep disorder
     Dates: start: 2021
  5. ZOFRAN [Concomitant]
     Active Substance: ONDANSETRON HYDROCHLORIDE
     Indication: Nausea
     Dates: start: 2011
  6. FISH OIL [Concomitant]
     Active Substance: FISH OIL
     Indication: Inflammation
     Dates: start: 2014
  7. MAGNESIUM [Concomitant]
     Active Substance: MAGNESIUM
     Indication: Sleep disorder
     Dates: start: 2011

REACTIONS (4)
  - Inflammatory bowel disease [Unknown]
  - Influenza [Unknown]
  - Infection [Unknown]
  - Drug ineffective [Unknown]

NARRATIVE: CASE EVENT DATE: 20230201
